FAERS Safety Report 9100262 (Version 4)
Quarter: 2013Q1

REPORT INFORMATION
  Report Type: Report from Study
  Country: JP (occurrence: JP)
  Receive Date: 20130215
  Receipt Date: 20130307
  Transmission Date: 20140127
  Serious: Yes (Hospitalization)
  Sender: FDA-Public Use
  Company Number: JP-UCBSA-077899

PATIENT
  Age: 72 Year
  Sex: Female
  Weight: 49.1 kg

DRUGS (18)
  1. CERTOLIZUMAB PEGOL [Suspect]
     Indication: RHEUMATOID ARTHRITIS
     Dosage: 400 MG, 200 MG
     Route: 058
     Dates: start: 20090909
  2. CERTOLIZUMAB PEGOL [Suspect]
     Indication: RHEUMATOID ARTHRITIS
     Route: 058
     Dates: start: 20100324, end: 20130123
  3. CERTOLIZUMAB PEGOL [Suspect]
     Indication: RHEUMATOID ARTHRITIS
     Route: 058
     Dates: start: 20130123, end: 20130206
  4. PREDNISOLONE [Suspect]
     Indication: RHEUMATOID ARTHRITIS
     Route: 048
     Dates: start: 20110502
  5. PROGRAF [Suspect]
     Indication: RHEUMATOID ARTHRITIS
     Dosage: TOTAL DAILY DOSE: 2G
     Route: 048
     Dates: start: 20110518
  6. BUCILLAMINE [Concomitant]
     Indication: RHEUMATOID ARTHRITIS
     Route: 048
     Dates: start: 20101227
  7. LORNOXICAM [Concomitant]
     Indication: ANALGESIC THERAPY
     Route: 048
     Dates: start: 20090728
  8. REBAMIPIDE [Concomitant]
     Indication: GASTRITIS PROPHYLAXIS
     Route: 048
     Dates: start: 20090728
  9. FURSULTIAMINE B2 B6 B12 [Concomitant]
     Indication: PROPHYLAXIS
     Route: 048
     Dates: start: 20090519
  10. FURSULTIAMINE B2 B6 B12 [Concomitant]
     Indication: PROPHYLAXIS
     Route: 048
     Dates: start: 20090519
  11. LORATADINE [Concomitant]
     Indication: PROPHYLAXIS
     Route: 048
     Dates: start: 20091118
  12. SODIUM RABEPRAZOLE [Concomitant]
     Indication: PROPHYLAXIS AGAINST GASTROINTESTINAL ULCER
     Route: 048
     Dates: start: 20100519
  13. ZOLPIDEM TARTRATE [Concomitant]
     Indication: INSOMNIA
     Route: 048
     Dates: start: 20100908
  14. DICYCLOMINE_ ALUMINIUM HYDROXIDE GEL COMBINED DRUG [Concomitant]
     Indication: GASTRITIS
     Route: 048
     Dates: start: 20120919
  15. DICYCLOMINE_ ALUMINIUM HYDROXIDE GEL COMBINED DRUG [Concomitant]
     Indication: GASTRITIS
     Route: 048
     Dates: start: 20120919
  16. TAMIFLU [Concomitant]
     Indication: INFLUENZA
     Route: 048
     Dates: start: 20130130, end: 20130201
  17. CALONAL [Concomitant]
     Indication: HEADACHE
     Dosage: AS NEEDED
     Route: 048
     Dates: start: 20130130
  18. FURSULTIAMINE B2 B6 B12 [Concomitant]

REACTIONS (1)
  - Bronchopneumonia [Recovered/Resolved]
